FAERS Safety Report 19293941 (Version 1)
Quarter: 2021Q2

REPORT INFORMATION
  Report Type: Spontaneous
  Country: US (occurrence: US)
  Receive Date: 20210524
  Receipt Date: 20210524
  Transmission Date: 20210717
  Serious: Yes (Other)
  Sender: FDA-Public Use
  Company Number: None

PATIENT
  Age: 57 Year
  Sex: Male

DRUGS (1)
  1. OXYMORPHONE 40MG ER [Suspect]
     Active Substance: OXYMORPHONE
     Indication: COMPLEX REGIONAL PAIN SYNDROME
     Route: 048
     Dates: start: 20001101

REACTIONS (5)
  - Illness [None]
  - Withdrawal syndrome [None]
  - Suspected product quality issue [None]
  - Influenza [None]
  - Inadequate analgesia [None]

NARRATIVE: CASE EVENT DATE: 20210514
